FAERS Safety Report 5861337-2 (Version None)
Quarter: 2008Q3

REPORT INFORMATION
  Report Type: 
  Country: None (occurrence: None)
  Receive Date: 20080827
  Receipt Date: 20080425
  Transmission Date: 20090109
  Serious: No
  Sender: FDA-Public Use
  Company Number: US-ABBOTT-08P-163-0449002-00

PATIENT
  Sex: Female
  Weight: 72.64 kg

DRUGS (6)
  1. COATED PDS [Suspect]
     Indication: BLOOD TRIGLYCERIDES INCREASED
     Route: 048
     Dates: start: 20080418, end: 20080422
  2. COATED PDS [Suspect]
     Route: 048
     Dates: start: 20080422
  3. FISH OIL [Concomitant]
     Indication: BLOOD CHOLESTEROL
     Route: 048
     Dates: start: 20080423
  4. BENICAR HCT [Concomitant]
     Indication: BLOOD PRESSURE
     Route: 048
     Dates: start: 20080201
  5. BUMETANIDE [Concomitant]
     Indication: DIURETIC THERAPY
     Route: 048
  6. ACETAMINOPHEN [Concomitant]
     Indication: FLUSHING
     Route: 048
     Dates: start: 20080422

REACTIONS (7)
  - ASTHENIA [None]
  - BLOOD PRESSURE DECREASED [None]
  - DRUG DOSE OMISSION [None]
  - FLUSHING [None]
  - MUSCLE SPASMS [None]
  - NAUSEA [None]
  - WEIGHT DECREASED [None]
